FAERS Safety Report 9536926 (Version 1)
Quarter: 2013Q3

REPORT INFORMATION
  Report Type: Spontaneous
  Country: US (occurrence: None)
  Receive Date: 20130918
  Receipt Date: 20130918
  Transmission Date: 20140515
  Serious: Yes (Life-Threatening)
  Sender: FDA-Public Use
  Company Number: None

PATIENT
  Age: 73 Year
  Sex: Male
  Weight: 98.9 kg

DRUGS (12)
  1. FESOTERODINE [Suspect]
     Indication: HYPERTONIC BLADDER
     Dosage: 8 MG QD ORAL
     Route: 048
     Dates: start: 20110601, end: 20110616
  2. ALLOPURINOL, [Concomitant]
  3. DONEPEZIL, 10 MG, SOLCO HEALTH [Concomitant]
  4. ASPIRIN, [Concomitant]
  5. CARBIDOPA-LEVODOPA, [Concomitant]
  6. DOCUSATE, [Concomitant]
  7. METFORMIN, [Concomitant]
  8. MEMANTINE, [Concomitant]
  9. SENNA, [Concomitant]
  10. SERTRALINE, [Concomitant]
  11. SIMVASTATIN, [Concomitant]
  12. LISINOPRIL [Concomitant]

REACTIONS (2)
  - Gout [None]
  - Mental status changes [None]
